FAERS Safety Report 12777846 (Version 1)
Quarter: 2016Q3

REPORT INFORMATION
  Report Type: Spontaneous
  Country: US (occurrence: US)
  Receive Date: 20160924
  Receipt Date: 20160924
  Transmission Date: 20161109
  Serious: No
  Sender: FDA-Public Use
  Company Number: US-JAZZ-2016-US-010669

PATIENT
  Sex: Female

DRUGS (61)
  1. PANCREAZE [Concomitant]
     Active Substance: PANCRELIPASE AMYLASE\PANCRELIPASE LIPASE\PANCRELIPASE PROTEASE
  2. XIFAXAN [Concomitant]
     Active Substance: RIFAXIMIN
  3. DMPS [Concomitant]
  4. EDTA [Concomitant]
     Active Substance: EDETIC ACID
  5. FLAGYL [Concomitant]
     Active Substance: METRONIDAZOLE\METRONIDAZOLE HYDROCHLORIDE
  6. FROVA [Concomitant]
     Active Substance: FROVATRIPTAN SUCCINATE
  7. MINOCYCLINE ER [Concomitant]
  8. XYREM [Suspect]
     Active Substance: SODIUM OXYBATE
     Indication: APNOEA
     Dosage: 2.25 G, BID
     Route: 048
     Dates: start: 201002, end: 201003
  9. VITAMIN B COMPLEX [Concomitant]
     Active Substance: CYANOCOBALAMIN\DEXPANTHENOL\NIACINAMIDE\PYRIDOXINE HYDROCHLORIDE\RIBOFLAVIN 5^-PHOSPHATE SODIUM\THIAMINE HYDROCHLORIDE\VITAMIN B COMPLEX
  10. ALPHA LIPOIC ACID [Concomitant]
     Active Substance: .ALPHA.-LIPOIC ACID
  11. AZACTAM [Concomitant]
     Active Substance: AZTREONAM
  12. CHEMET [Concomitant]
     Active Substance: SUCCIMER
  13. LEVOCARNITINE. [Concomitant]
     Active Substance: LEVOCARNITINE
  14. VITAMIN B12 [Concomitant]
     Active Substance: CYANOCOBALAMIN
  15. ALBENZA [Concomitant]
     Active Substance: ALBENDAZOLE
  16. ALINIA [Concomitant]
     Active Substance: NITAZOXANIDE
  17. POTASSIUM CL ER [Concomitant]
     Active Substance: POTASSIUM CHLORIDE
  18. BENADRYL [Concomitant]
     Active Substance: DIPHENHYDRAMINE HYDROCHLORIDE
  19. CLONAZEPAM. [Concomitant]
     Active Substance: CLONAZEPAM
  20. GARLIC ODOR FREE [Concomitant]
  21. IRON [Concomitant]
     Active Substance: IRON
  22. METACYCLINE [Concomitant]
  23. NABUMETONE. [Concomitant]
     Active Substance: NABUMETONE
  24. SELENIUM [Concomitant]
     Active Substance: SELENIUM
  25. STROMECTOL [Concomitant]
     Active Substance: IVERMECTIN
  26. XYREM [Suspect]
     Active Substance: SODIUM OXYBATE
     Dosage: DOSE ADJUSTMENTS
     Route: 048
     Dates: start: 201003, end: 201007
  27. XYREM [Suspect]
     Active Substance: SODIUM OXYBATE
     Dosage: 5 G, FIRST DOSE
     Route: 048
     Dates: start: 201007, end: 2011
  28. XYREM [Suspect]
     Active Substance: SODIUM OXYBATE
     Dosage: DOSE ADJUSTMENTS
     Route: 048
     Dates: start: 201108, end: 201605
  29. KEPPRA [Concomitant]
     Active Substance: LEVETIRACETAM
  30. NALTREXONE [Concomitant]
     Active Substance: NALTREXONE
  31. LEVOTHROID [Concomitant]
     Active Substance: LEVOTHYROXINE SODIUM
  32. MAXALT [Concomitant]
     Active Substance: RIZATRIPTAN BENZOATE
  33. MEPRON [Concomitant]
     Active Substance: ATOVAQUONE
  34. MIDODRINE HCL [Concomitant]
     Active Substance: MIDODRINE HYDROCHLORIDE
  35. AZITHROMYCIN ANHYDROUS. [Concomitant]
     Active Substance: AZITHROMYCIN ANHYDROUS
  36. MULTIVITAMIN [Concomitant]
     Active Substance: VITAMINS
  37. MYCOBUTIN [Concomitant]
     Active Substance: RIFABUTIN
  38. XYREM [Suspect]
     Active Substance: SODIUM OXYBATE
     Dosage: 2.5 G, BID
     Route: 048
     Dates: start: 201107, end: 201108
  39. XYREM [Suspect]
     Active Substance: SODIUM OXYBATE
     Dosage: 5.5 G, BID
     Route: 048
     Dates: start: 201605
  40. VITAMIN D [Concomitant]
     Active Substance: CHOLECALCIFEROL
  41. GAMUNEX-C [Concomitant]
     Active Substance: HUMAN IMMUNOGLOBULIN G
  42. HYDROCORTISONE. [Concomitant]
     Active Substance: HYDROCORTISONE
  43. HYDROXYCHLOROQUINE [Concomitant]
     Active Substance: HYDROXYCHLOROQUINE
  44. IVIGLOB EX [Concomitant]
     Active Substance: HUMAN IMMUNOGLOBULIN G
  45. PLAQUENIL [Concomitant]
     Active Substance: HYDROXYCHLOROQUINE SULFATE
  46. PROBIOTIC [Concomitant]
     Active Substance: PROBIOTICS NOS
  47. XYREM [Suspect]
     Active Substance: SODIUM OXYBATE
     Dosage: 4 G, SECOND DOSE
     Route: 048
     Dates: start: 201007, end: 2011
  48. ARMOUR THYROID [Concomitant]
     Active Substance: THYROID, PORCINE
  49. DESMOPRESSIN ACETATE. [Concomitant]
     Active Substance: DESMOPRESSIN ACETATE
  50. FLUDROCORTISONE [Concomitant]
     Active Substance: FLUDROCORTISONE
  51. VITAMIN C TR [Concomitant]
  52. CHOLESTYRAMINE. [Concomitant]
     Active Substance: CHOLESTYRAMINE
  53. GLUTATHIONE [Concomitant]
     Active Substance: GLUTATHIONE
  54. CAPRYLIC ACID [Concomitant]
  55. OMEGA 3 [Concomitant]
     Active Substance: OMEGA-3 FATTY ACIDS
  56. RESTASIS [Concomitant]
     Active Substance: CYCLOSPORINE
  57. COENZYME Q10 [Concomitant]
     Active Substance: UBIDECARENONE
  58. GOLDENSEAL [Concomitant]
     Active Substance: GOLDENSEAL
  59. OREGANO OIL [Concomitant]
  60. ROZEREM [Concomitant]
     Active Substance: RAMELTEON
  61. FLEXERIL [Concomitant]
     Active Substance: CYCLOBENZAPRINE HYDROCHLORIDE

REACTIONS (1)
  - Wrist fracture [Unknown]
